FAERS Safety Report 25096096 (Version 3)
Quarter: 2025Q3

REPORT INFORMATION
  Report Type: Spontaneous
  Country: US (occurrence: US)
  Receive Date: 20250319
  Receipt Date: 20250720
  Transmission Date: 20251021
  Serious: No
  Sender: ELI LILLY AND COMPANY
  Company Number: US-ELI_LILLY_AND_COMPANY-US202503014134

PATIENT
  Age: 61 Year
  Sex: Female

DRUGS (2)
  1. TALTZ [Suspect]
     Active Substance: IXEKIZUMAB
     Indication: Psoriasis
     Route: 058
     Dates: start: 2023
  2. TALTZ [Suspect]
     Active Substance: IXEKIZUMAB
     Route: 058

REACTIONS (2)
  - Psoriasis [Recovered/Resolved]
  - Product dose omission issue [Unknown]
